FAERS Safety Report 5506365-1 (Version None)
Quarter: 2007Q4

REPORT INFORMATION
  Report Type: 
  Country: None (occurrence: None)
  Receive Date: 20071101
  Receipt Date: 20071019
  Transmission Date: 20080405
  Serious: Yes (Death, Hospitalization)
  Sender: FDA-Public Use
  Company Number: 2006US000821

PATIENT
  Age: 61 Year
  Sex: Male

DRUGS (13)
  1. PROGRAF [Suspect]
     Indication: PROPHYLAXIS AGAINST TRANSPLANT REJECTION
     Dosage: 2 MG, BID, ORAL; 3 MG, UID/QD, ORAL
     Route: 048
     Dates: start: 20041202, end: 20060122
  2. PROGRAF [Suspect]
     Indication: PROPHYLAXIS AGAINST TRANSPLANT REJECTION
     Dosage: 2 MG, BID, ORAL; 3 MG, UID/QD, ORAL
     Route: 048
     Dates: start: 20060123
  3. MYCOPHENOLATE MOFETIL [Suspect]
     Indication: PROPHYLAXIS AGAINST TRANSPLANT REJECTION
     Dosage: 500 MG, BID, ORAL; 250 MG, BID, ORAL
     Route: 048
     Dates: start: 20041201, end: 20060111
  4. MYCOPHENOLATE MOFETIL [Suspect]
     Indication: PROPHYLAXIS AGAINST TRANSPLANT REJECTION
     Dosage: 500 MG, BID, ORAL; 250 MG, BID, ORAL
     Route: 048
     Dates: start: 20060123
  5. PREDNISONE [Suspect]
     Indication: PROPHYLAXIS AGAINST TRANSPLANT REJECTION
     Dosage: 7.5 MG, UID/QD, ORAL;  5 MG, UID, QD, ORAL
     Route: 048
     Dates: start: 20041203, end: 20060122
  6. PREDNISONE [Suspect]
     Indication: PROPHYLAXIS AGAINST TRANSPLANT REJECTION
     Dosage: 7.5 MG, UID/QD, ORAL;  5 MG, UID, QD, ORAL
     Route: 048
     Dates: start: 20060123
  7. HYDROCHLOROTHIAZIDE [Concomitant]
  8. ASPIRIN [Concomitant]
  9. CENTRUM (BIOTIN, ASCORBIC ACID) [Concomitant]
  10. NIFEDIPINE [Concomitant]
  11. SIMVASTATIN [Concomitant]
  12. ZANTAC 150 [Concomitant]
  13. INFLUENZA VIRUS VACCINE (INFLUENZA VIRUS VACCINE POLYVALENT) [Concomitant]

REACTIONS (3)
  - LUNG SQUAMOUS CELL CARCINOMA STAGE UNSPECIFIED [None]
  - METASTASES TO ADRENALS [None]
  - RADIATION OESOPHAGITIS [None]
